FAERS Safety Report 24787291 (Version 1)
Quarter: 2024Q4

REPORT INFORMATION
  Report Type: Spontaneous
  Country: AU (occurrence: AU)
  Receive Date: 20241230
  Receipt Date: 20241230
  Transmission Date: 20250114
  Serious: Yes (Hospitalization)
  Sender: RECORDATI
  Company Number: AU-RECORDATI RARE DISEASE INC.-2024010154

PATIENT

DRUGS (1)
  1. ISTURISA [Suspect]
     Active Substance: OSILODROSTAT PHOSPHATE
     Indication: Neuroendocrine tumour of the lung metastatic
     Dosage: 10 MG MORNING AND 15 MG NIGHT
     Dates: start: 20241207, end: 20241219

REACTIONS (1)
  - Sepsis [Unknown]

NARRATIVE: CASE EVENT DATE: 20241201
